FAERS Safety Report 6368534-0 (Version None)
Quarter: 2009Q3

REPORT INFORMATION
  Report Type: 
  Country: None (occurrence: None)
  Receive Date: 20090916
  Receipt Date: 20090904
  Transmission Date: 20100115
  Serious: No
  Sender: FDA-Public Use
  Company Number: 371783

PATIENT
  Sex: Female
  Weight: 70 kg

DRUGS (1)
  1. AMIDATE [Suspect]
     Indication: ELECTROCONVULSIVE THERAPY
     Dosage: 12MG, ONCE, INTRAVENOUS
     Route: 042
     Dates: start: 20090904, end: 20090904

REACTIONS (3)
  - BLOOD PRESSURE INCREASED [None]
  - INSOMNIA [None]
  - SCREAMING [None]
